FAERS Safety Report 7358365-7 (Version None)
Quarter: 2011Q1

REPORT INFORMATION
  Report Type: 
  Country: None (occurrence: None)
  Receive Date: 20110317
  Receipt Date: 20100729
  Transmission Date: 20110831
  Serious: Yes (Life-Threatening, Hospitalization)
  Sender: FDA-Public Use
  Company Number: JP-ASTRAZENECA-2011SE14207

PATIENT
  Age: 29416 Day
  Sex: Female

DRUGS (2)
  1. MEROPENEM [Suspect]
     Indication: INFECTION
     Route: 042
  2. ZOSYN [Concomitant]

REACTIONS (1)
  - PANCYTOPENIA [None]
